FAERS Safety Report 5851879-8 (Version None)
Quarter: 2008Q3

REPORT INFORMATION
  Report Type: 
  Country: None (occurrence: None)
  Receive Date: 20080819
  Receipt Date: 20080812
  Transmission Date: 20090109
  Serious: Yes (Hospitalization)
  Sender: FDA-Public Use
  Company Number: GXKR2008DE07200

PATIENT
  Sex: Male
  Weight: 43 kg

DRUGS (1)
  1. CEFTRIAXONE HEXAL (NGX) (CEFTRIAXONE) POWDER FOR SOL FOR INF [Suspect]
     Indication: NEUROBORRELIOSIS
     Dosage: UNK, INFUSION
     Dates: start: 20080720, end: 20080801

REACTIONS (3)
  - PRURITUS [None]
  - RASH VESICULAR [None]
  - URTICARIA [None]
